FAERS Safety Report 4774955-X (Version None)
Quarter: 2005Q3

REPORT INFORMATION
  Report Type: 
  Country: None (occurrence: None)
  Receive Date: 20050920
  Receipt Date: 20050905
  Transmission Date: 20060218
  Serious: Yes (Life-Threatening, Hospitalization, Disabling, Other)
  Sender: FDA-Public Use
  Company Number: 2005-0008669

PATIENT
  Age: 42 Year
  Sex: Male
  Weight: 34.0198 kg

DRUGS (7)
  1. VIREAD [Suspect]
     Indication: HIV INFECTION
     Dosage: SEE IMAGE
     Route: 048
     Dates: start: 20050412, end: 20050505
  2. VIREAD [Suspect]
     Indication: HIV INFECTION
     Dosage: SEE IMAGE
     Route: 048
     Dates: start: 20050505, end: 20050507
  3. KALETRA [Concomitant]
  4. VIDEX EC [Concomitant]
  5. CENTRUM FORTE (CENTRUM FORTE) [Concomitant]
  6. HYDRASENSE [Concomitant]
  7. NASOCORT AQ (BUDESONIDE) [Concomitant]

REACTIONS (7)
  - BLOOD ALBUMIN DECREASED [None]
  - CELLULITIS [None]
  - CONDITION AGGRAVATED [None]
  - DYSPNOEA [None]
  - HEPATIC CIRRHOSIS [None]
  - NEPHROTIC SYNDROME [None]
  - RENAL FAILURE ACUTE [None]
